FAERS Safety Report 8966578 (Version 4)
Quarter: 2013Q1

REPORT INFORMATION
  Report Type: Spontaneous
  Country: FI (occurrence: FI)
  Receive Date: 20121217
  Receipt Date: 20130326
  Transmission Date: 20140127
  Serious: Yes (Hospitalization)
  Sender: FDA-Public Use
  Company Number: FI-ELI_LILLY_AND_COMPANY-FI201212002032

PATIENT
  Age: 79 Year
  Sex: Female

DRUGS (14)
  1. FORSTEO [Suspect]
     Indication: OSTEOPOROSIS
     Dosage: 20 UG, QD
     Route: 058
     Dates: start: 20121108
  2. SINGULAIR [Concomitant]
     Indication: ASTHMA
     Dosage: 10 MG, UNKNOWN
  3. TILADE [Concomitant]
     Indication: ASTHMA
     Dosage: 2 MG, UNKNOWN
  4. ATORVASTATIN [Concomitant]
     Indication: BLOOD CHOLESTEROL
  5. DIFORMIN [Concomitant]
     Indication: DIABETES MELLITUS
     Dosage: 500 MG, UNKNOWN
  6. KALCIPOS-D [Concomitant]
     Indication: MEDICAL DIET
  7. TRIMOPAN [Concomitant]
     Indication: PROPHYLAXIS
  8. NITROFURAN [Concomitant]
     Indication: PROPHYLAXIS
  9. NEXIUM [Concomitant]
  10. PANADOL [Concomitant]
     Indication: PAIN
  11. NEURONTIN [Concomitant]
     Indication: PAIN
     Dosage: 300 MG, UNKNOWN
  12. ARCOXIA [Concomitant]
     Indication: HYPERSENSITIVITY
     Dosage: 60 MG, UNKNOWN
  13. VAGIFEM [Concomitant]
     Indication: VULVOVAGINAL DRYNESS
  14. SEREVENT [Concomitant]
     Indication: ASTHMA

REACTIONS (5)
  - Cerebral infarction [Recovered/Resolved]
  - Pruritus generalised [Not Recovered/Not Resolved]
  - Erythema [Not Recovered/Not Resolved]
  - Hyperhidrosis [Not Recovered/Not Resolved]
  - Fatigue [Not Recovered/Not Resolved]
